FAERS Safety Report 15689365 (Version 1)
Quarter: 2018Q4

REPORT INFORMATION
  Report Type: Spontaneous
  Country: ES (occurrence: ES)
  Receive Date: 20181205
  Receipt Date: 20181205
  Transmission Date: 20190205
  Serious: Yes (Hospitalization, Other)
  Sender: FDA-Public Use
  Company Number: ES-HORIZON-PRE-0536-2018

PATIENT
  Age: 86 Year
  Sex: Male

DRUGS (8)
  1. PREDNISONE. [Suspect]
     Active Substance: PREDNISONE
     Indication: PRODUCT USED FOR UNKNOWN INDICATION
     Dosage: 45 MG
  2. OMEPRAZOL [Concomitant]
     Active Substance: OMEPRAZOLE
  3. CEFEPIME [Concomitant]
     Active Substance: CEFEPIME HYDROCHLORIDE
     Indication: INTERVERTEBRAL DISCITIS
  4. ACENOCUMAROL [Concomitant]
     Active Substance: ACENOCOUMAROL
  5. FUROSEMIDA [Concomitant]
     Active Substance: FUROSEMIDE
  6. DAPTOMICINA [Suspect]
     Active Substance: DAPTOMYCIN
     Indication: INTERVERTEBRAL DISCITIS
     Dosage: 350 MG EVERY 24 HOURS
  7. BISOPROLOL 5 MG [Concomitant]
     Active Substance: BISOPROLOL
  8. LORMETAZEPAM [Concomitant]
     Active Substance: LORMETAZEPAM

REACTIONS (15)
  - Choluria [Recovered/Resolved]
  - Acute kidney injury [Recovered/Resolved]
  - Troponin increased [Recovered/Resolved]
  - Uraemic encephalopathy [Recovered/Resolved]
  - Mucocutaneous haemorrhage [Recovered/Resolved]
  - Haemorrhage [Recovered/Resolved]
  - Anaemia [Recovered/Resolved]
  - Oliguria [Recovered/Resolved]
  - Malaise [Recovered/Resolved]
  - Musculoskeletal stiffness [Recovered/Resolved]
  - Haemoptysis [Recovered/Resolved]
  - Muscle spasms [Recovered/Resolved]
  - Rhabdomyolysis [Recovered/Resolved]
  - Metabolic acidosis [Recovered/Resolved]
  - Pyrexia [Recovered/Resolved]
